FAERS Safety Report 8416449-6 (Version None)
Quarter: 2012Q2

REPORT INFORMATION
  Report Type: 
  Country: None (occurrence: None)
  Receive Date: 20120606
  Receipt Date: 20120601
  Transmission Date: 20120825
  Serious: Yes (Hospitalization)
  Sender: FDA-Public Use
  Company Number: FR-ROCHE-1074713

PATIENT
  Age: 72 Year
  Sex: Male

DRUGS (5)
  1. DOXORUBICIN HCL [Concomitant]
     Route: 042
     Dates: start: 20110601, end: 20111031
  2. ONCOVIN [Concomitant]
     Route: 042
     Dates: start: 20110601, end: 20111031
  3. MABTHERA [Suspect]
     Indication: PRODUCT USED FOR UNKNOWN INDICATION
     Route: 042
     Dates: start: 20110601, end: 20120514
  4. CYCLOPHOSPHAMIDE [Suspect]
     Indication: PRODUCT USED FOR UNKNOWN INDICATION
     Route: 042
     Dates: start: 20110601, end: 20111031
  5. PREDNISONE TAB [Concomitant]
     Dates: start: 20110601, end: 20111031

REACTIONS (2)
  - PULMONARY FIBROSIS [None]
  - INTERSTITIAL LUNG DISEASE [None]
